FAERS Safety Report 10150700 (Version 2)
Quarter: 2014Q2

REPORT INFORMATION
  Report Type: Spontaneous
  Country: DE (occurrence: DE)
  Receive Date: 20140502
  Receipt Date: 20140620
  Transmission Date: 20141212
  Serious: Yes (Other)
  Sender: FDA-Public Use
  Company Number: DE-BRISTOL-MYERS SQUIBB COMPANY-20671897

PATIENT
  Age: 89 Year
  Sex: Male
  Weight: 70 kg

DRUGS (1)
  1. LITALIR CAPS [Suspect]
     Indication: LEUKAEMIA
     Dosage: 8 YEARS AGO

REACTIONS (2)
  - Oesophageal atony [Not Recovered/Not Resolved]
  - Dizziness [Not Recovered/Not Resolved]
